FAERS Safety Report 6393155-3 (Version None)
Quarter: 2009Q4

REPORT INFORMATION
  Report Type: 
  Country: None (occurrence: None)
  Receive Date: 20091008
  Receipt Date: 20090925
  Transmission Date: 20100525
  Serious: Yes (Other)
  Sender: FDA-Public Use
  Company Number: FR-BAYER-200933706GPV

PATIENT
  Age: 42 Year
  Sex: Female

DRUGS (2)
  1. CIFLOX [Suspect]
     Indication: DIVERTICULITIS
     Dosage: TOTAL DAILY DOSE: 1000 MG  UNIT DOSE: 500 MG
     Route: 048
     Dates: start: 20090507, end: 20090516
  2. FLAGYL [Suspect]
     Indication: DIVERTICULITIS
     Dosage: TOTAL DAILY DOSE: 1500 MG  UNIT DOSE: 500 MG
     Route: 048
     Dates: start: 20090507, end: 20090516

REACTIONS (2)
  - BLOOD CREATINE PHOSPHOKINASE INCREASED [None]
  - MYALGIA [None]
